FAERS Safety Report 7144432-X (Version None)
Quarter: 2010Q4

REPORT INFORMATION
  Report Type: 
  Country: None (occurrence: None)
  Receive Date: 20101208
  Receipt Date: 20101119
  Transmission Date: 20110411
  Serious: Yes (Life-Threatening)
  Sender: FDA-Public Use
  Company Number: IT-BAYER-201047926GPV

PATIENT

DRUGS (5)
  1. ENDOPROST [Suspect]
     Indication: RAYNAUD'S PHENOMENON
     Dosage: 50 A?G (DAILY DOSE), , UNKNOWN
     Route: 065
     Dates: start: 20101114, end: 20101114
  2. BOSENTAN [Concomitant]
     Route: 048
  3. ESOMEPRAZOLE MAGNESIUM [Concomitant]
     Dosage: 40 MG (DAILY DOSE), , ORAL
     Route: 048
  4. PENTOXIFYLLINE [Concomitant]
     Route: 048
  5. ACETYLSALICYLIC ACID [Concomitant]
     Route: 048

REACTIONS (10)
  - CHEST PAIN [None]
  - CHILLS [None]
  - CYANOSIS [None]
  - DYSPNOEA [None]
  - HEART RATE DECREASED [None]
  - HYPERHIDROSIS [None]
  - HYPOTENSION [None]
  - NAUSEA [None]
  - PALPITATIONS [None]
  - TREMOR [None]
